FAERS Safety Report 20327236 (Version 3)
Quarter: 2022Q2

REPORT INFORMATION
  Report Type: Spontaneous
  Country: US (occurrence: US)
  Receive Date: 20220112
  Receipt Date: 20220407
  Transmission Date: 20220721
  Serious: Yes (Hospitalization, Other)
  Sender: FDA-Public Use
  Company Number: US-ABBVIE-22K-163-4228319-00

PATIENT
  Age: 68 Year
  Sex: Male
  Weight: 86.260 kg

DRUGS (4)
  1. HUMIRA [Suspect]
     Active Substance: ADALIMUMAB
     Indication: Crohn^s disease
     Route: 058
     Dates: start: 202109, end: 20211125
  2. PFIZER-BIONTECH COVID-19 VACCINE [Concomitant]
     Active Substance: TOZINAMERAN
     Indication: COVID-19 immunisation
     Dosage: FIRST DOSE
     Route: 030
  3. PFIZER-BIONTECH COVID-19 VACCINE [Concomitant]
     Active Substance: TOZINAMERAN
     Dosage: SECOND DOSE
     Route: 030
  4. PFIZER-BIONTECH COVID-19 VACCINE [Concomitant]
     Active Substance: TOZINAMERAN
     Dosage: THIRD BOOSTER DOSE
     Route: 030

REACTIONS (4)
  - Gastrointestinal stoma complication [Recovering/Resolving]
  - Stoma site discharge [Recovering/Resolving]
  - Stoma site abscess [Not Recovered/Not Resolved]
  - Gastrointestinal perforation [Recovering/Resolving]

NARRATIVE: CASE EVENT DATE: 20211207
